FAERS Safety Report 21766814 (Version 1)
Quarter: 2022Q4

REPORT INFORMATION
  Report Type: Report from Study
  Country: US (occurrence: US)
  Receive Date: 20221222
  Receipt Date: 20221222
  Transmission Date: 20230112
  Serious: No
  Sender: FDA-Public Use
  Company Number: US-ABBVIE-22K-163-4424521-00

PATIENT
  Sex: Female

DRUGS (1)
  1. HUMIRA [Suspect]
     Active Substance: ADALIMUMAB
     Indication: Ankylosing spondylitis
     Route: 058

REACTIONS (6)
  - Osteoarthritis [Unknown]
  - Frustration tolerance decreased [Unknown]
  - Disability [Unknown]
  - Loss of personal independence in daily activities [Unknown]
  - Overweight [Recovering/Resolving]
  - Depression [Not Recovered/Not Resolved]
